FAERS Safety Report 9570896 (Version 1)
Quarter: 2013Q4

REPORT INFORMATION
  Report Type: Spontaneous
  Country: US (occurrence: US)
  Receive Date: 20131001
  Receipt Date: 20131001
  Transmission Date: 20140711
  Serious: Yes (Hospitalization)
  Sender: FDA-Public Use
  Company Number: US-VERTEX PHARMACEUTICALS INC-2013-010048

PATIENT
  Age: 68 Year
  Sex: Female
  Weight: 93.88 kg

DRUGS (3)
  1. INCIVEK [Suspect]
     Indication: HEPATITIS C
     Dosage: 750 MG, TID
     Route: 048
     Dates: start: 20130913, end: 20130924
  2. RIBAVIRIN [Suspect]
     Indication: HEPATITIS C
     Dosage: UNK, BID
     Route: 048
     Dates: start: 20130913, end: 20130924
  3. PEGINTERFERON ALFA [Suspect]
     Indication: HEPATITIS C
     Dosage: UNK, QW
     Route: 058
     Dates: start: 20130913, end: 20130924

REACTIONS (1)
  - Gastrointestinal haemorrhage [Recovered/Resolved]
